FAERS Safety Report 21651484 (Version 1)
Quarter: 2022Q4

REPORT INFORMATION
  Report Type: Spontaneous
  Country: US (occurrence: None)
  Receive Date: 20221128
  Receipt Date: 20221128
  Transmission Date: 20230113
  Serious: No
  Sender: FDA-Public Use
  Company Number: 2022A363001

PATIENT
  Sex: Female
  Weight: 92.1 kg

DRUGS (1)
  1. PULMICORT FLEXHALER [Suspect]
     Active Substance: BUDESONIDE
     Indication: Asthma
     Dosage: 2 PUFFS 2 TIMES A DAY
     Route: 055
     Dates: start: 20221027

REACTIONS (5)
  - Chest discomfort [Not Recovered/Not Resolved]
  - Device use issue [Unknown]
  - Drug dose omission by device [Unknown]
  - Incorrect dose administered by device [Unknown]
  - Device malfunction [Unknown]
